FAERS Safety Report 4600480-2 (Version None)
Quarter: 2005Q1

REPORT INFORMATION
  Report Type: 
  Country: None (occurrence: None)
  Receive Date: 20050304
  Receipt Date: 20050218
  Transmission Date: 20050727
  Serious: Yes (Hospitalization)
  Sender: FDA-Public Use
  Company Number: 2005-0008066

PATIENT
  Age: 41 Year
  Sex: Male

DRUGS (8)
  1. VIREAD [Suspect]
     Indication: HIV INFECTION
     Dosage: 300 MG, 1 IN 1 D, ORAL
     Route: 048
     Dates: start: 20040515, end: 20040901
  2. VIDEX [Suspect]
     Indication: HIV INFECTION
     Dosage: 1 DOSAGE FORMS, 1 IN 1 D, ORAL
     Route: 048
     Dates: start: 20030515, end: 20040916
  3. KALETRA [Suspect]
     Indication: HIV INFECTION
     Dosage: 6 DOSAGE FORMS, 1 IN 1 D, ORAL
     Route: 048
  4. FENOFIBRATE [Concomitant]
  5. DEPAKOTE [Concomitant]
  6. PROZAC [Concomitant]
  7. ZYPREXA [Concomitant]
  8. CLOPIXOL (ZUCLOPENTHIXOL) [Concomitant]

REACTIONS (10)
  - BLOOD ALKALINE PHOSPHATASE INCREASED [None]
  - FEMORAL NECK FRACTURE [None]
  - FEMUR FRACTURE [None]
  - HYPOPHOSPHATAEMIA [None]
  - NEUROPATHY PERIPHERAL [None]
  - OSTEOMALACIA [None]
  - PAIN IN EXTREMITY [None]
  - POLYDIPSIA [None]
  - POLYURIA [None]
  - RENAL TUBULAR DISORDER [None]
